FAERS Safety Report 12510232 (Version 3)
Quarter: 2017Q1

REPORT INFORMATION
  Report Type: Spontaneous
  Country: US (occurrence: US)
  Receive Date: 20160629
  Receipt Date: 20170213
  Transmission Date: 20170428
  Serious: Yes (Hospitalization, Other)
  Sender: FDA-Public Use
  Company Number: US-IGSA-GTI004284

PATIENT
  Age: 56 Year
  Sex: Male
  Weight: 77 kg

DRUGS (12)
  1. SYMBICORT [Concomitant]
     Active Substance: BUDESONIDE\FORMOTEROL FUMARATE DIHYDRATE
     Route: 055
  2. COMBIVENT [Concomitant]
     Active Substance: ALBUTEROL SULFATE\IPRATROPIUM BROMIDE
  3. DALIRESP [Concomitant]
     Active Substance: ROFLUMILAST
  4. PROLASTIN-C [Suspect]
     Active Substance: .ALPHA.1-PROTEINASE INHIBITOR HUMAN
     Indication: ALPHA-1 ANTI-TRYPSIN DEFICIENCY
     Route: 042
     Dates: start: 20160112
  5. SINGULAIR [Concomitant]
     Active Substance: MONTELUKAST SODIUM
  6. SPIRIVA [Concomitant]
     Active Substance: TIOTROPIUM BROMIDE MONOHYDRATE
  7. OXYGEN. [Concomitant]
     Active Substance: OXYGEN
     Route: 055
  8. ALLERGENS EXTRACT NOS [Suspect]
     Active Substance: ALLERGENIC EXTRACTS
     Indication: MULTIPLE ALLERGIES
     Dates: start: 20160510, end: 20160510
  9. PROAIR HFA [Concomitant]
     Active Substance: ALBUTEROL SULFATE
  10. ALLERGENS EXTRACT NOS [Suspect]
     Active Substance: ALLERGENIC EXTRACTS
     Indication: MULTIPLE ALLERGIES
     Dates: start: 2015
  11. PROLASTIN-C [Suspect]
     Active Substance: .ALPHA.1-PROTEINASE INHIBITOR HUMAN
     Indication: ALPHA-1 ANTI-TRYPSIN DEFICIENCY
     Route: 042
     Dates: start: 20160510, end: 20160510
  12. AMLODIPINE [Concomitant]
     Active Substance: AMLODIPINE BESYLATE

REACTIONS (1)
  - Anaphylactic reaction [Recovered/Resolved]

NARRATIVE: CASE EVENT DATE: 20160510
